FAERS Safety Report 22381340 (Version 2)
Quarter: 2025Q2

REPORT INFORMATION
  Report Type: Spontaneous
  Country: AU (occurrence: AU)
  Receive Date: 20230530
  Receipt Date: 20250623
  Transmission Date: 20250716
  Serious: Yes (Other)
  Sender: ORGANON
  Company Number: AU-ORGANON-O2305AUS002235

PATIENT
  Sex: Female

DRUGS (5)
  1. SINEMET [Suspect]
     Active Substance: CARBIDOPA\LEVODOPA
  2. SINEMET CR [Suspect]
     Active Substance: CARBIDOPA\LEVODOPA
  3. PRAMIPEXOLE [Suspect]
     Active Substance: PRAMIPEXOLE
  4. RASAGILINE MESYLATE [Suspect]
     Active Substance: RASAGILINE MESYLATE
  5. ROTIGOTINE [Suspect]
     Active Substance: ROTIGOTINE

REACTIONS (5)
  - Gastrointestinal necrosis [Unknown]
  - Obstruction gastric [Unknown]
  - Gastritis [Unknown]
  - Hiatus hernia [Unknown]
  - Product use issue [Unknown]
